FAERS Safety Report 15607770 (Version 1)
Quarter: 2018Q4

REPORT INFORMATION
  Report Type: Spontaneous
  Country: NL (occurrence: NL)
  Receive Date: 20181112
  Receipt Date: 20181112
  Transmission Date: 20190205
  Serious: Yes (Death)
  Sender: FDA-Public Use
  Company Number: NL-PFIZER INC-2018458224

PATIENT
  Age: 49 Year
  Sex: Female
  Weight: 57 kg

DRUGS (16)
  1. LACTULOSE. [Concomitant]
     Active Substance: LACTULOSE
     Dosage: 15 ML, 3X/DAY
  2. OXYNORM [Concomitant]
     Active Substance: OXYCODONE HYDROCHLORIDE
     Dosage: 10 MG, AS NEEDED (1-6 X/DAY)
  3. CALCIUM CARBONATE/COLECALCIFEROL/MAGNESIUM CARBONATE [Concomitant]
     Dosage: 1 DF, 1X/DAY
  4. DENOSUMAB [Concomitant]
     Active Substance: DENOSUMAB
     Dosage: 60 MG, MONTHLY
  5. DOCETAXEL. [Suspect]
     Active Substance: DOCETAXEL
     Indication: NON-SMALL CELL LUNG CANCER STAGE IV
     Dosage: 1 DF, COURSE 122 MG/1 HOUR
     Route: 042
     Dates: start: 20180921
  6. DEXAMETHASONE. [Concomitant]
     Active Substance: DEXAMETHASONE
     Dosage: ACCORDING DOSING REGIMEN
  7. NINTEDANIB [Concomitant]
     Active Substance: NINTEDANIB
     Dosage: 200 MG, 2X/DAY
     Dates: start: 20180911
  8. PREGABALINE [Concomitant]
     Active Substance: PREGABALIN
     Dosage: 75 G, 2X/DAY
  9. OMEPRAZOL [Concomitant]
     Active Substance: OMEPRAZOLE
     Dosage: 40 MG, 1X/DAY
  10. AMITRIPTYLINE [Concomitant]
     Active Substance: AMITRIPTYLINE
     Dosage: 25 MG, 1X/DAY
  11. PARACETAMOL [Concomitant]
     Active Substance: ACETAMINOPHEN
     Dosage: 1 G, 4X/DAY
  12. SALBUTAMOL [Concomitant]
     Active Substance: ALBUTEROL
     Dosage: AS NEEDED
  13. FOLIC ACID. [Concomitant]
     Active Substance: FOLIC ACID
     Dosage: 0.5 MG, 1X/DAY
  14. CELECOXIB. [Concomitant]
     Active Substance: CELECOXIB
     Dosage: 200 G, 2X/DAY
  15. ONDANSETRON [Concomitant]
     Active Substance: ONDANSETRON
     Dosage: 4 MG, UNK
  16. MAGNESIUMHYDROXIDE [Concomitant]
     Dosage: 724 MG, 3X/DAY

REACTIONS (1)
  - Cardiac failure acute [Fatal]

NARRATIVE: CASE EVENT DATE: 20180926
